FAERS Safety Report 12100541 (Version 2)
Quarter: 2016Q2

REPORT INFORMATION
  Report Type: Spontaneous
  Country: BR (occurrence: BR)
  Receive Date: 20160222
  Receipt Date: 20160406
  Transmission Date: 20160815
  Serious: Yes (Other)
  Sender: FDA-Public Use
  Company Number: BR-PFIZER INC-2016097095

PATIENT
  Age: 67 Year
  Sex: Female
  Weight: 70 kg

DRUGS (5)
  1. PYLORIPAC [Concomitant]
     Active Substance: AMOXICILLIN\CLARITHROMYCIN\LANSOPRAZOLE
     Dosage: 4 TABLETS IN THE MORNING AND 4 TABLETS IN THE EVENING
  2. CELEBRA [Suspect]
     Active Substance: CELECOXIB
     Indication: INFLAMMATION
     Dosage: 200 MG EVERY 12 HOURS
     Route: 048
     Dates: start: 20151115
  3. CELEBRA [Suspect]
     Active Substance: CELECOXIB
     Indication: ORAL DISORDER
  4. EUTHYROX [Concomitant]
     Active Substance: LEVOTHYROXINE SODIUM
     Indication: THYROID DISORDER
     Dosage: 75 MG, DAILY
     Dates: start: 2001
  5. LOSARTAN. [Concomitant]
     Active Substance: LOSARTAN
     Indication: BLOOD PRESSURE ABNORMAL
     Dosage: 1 TABLET DAILY

REACTIONS (1)
  - Gastritis bacterial [Recovered/Resolved]

NARRATIVE: CASE EVENT DATE: 20160215
